FAERS Safety Report 8630547 (Version 5)
Quarter: 2015Q1

REPORT INFORMATION
  Report Type: Spontaneous
  Country: DK (occurrence: DK)
  Receive Date: 20120622
  Receipt Date: 20150325
  Transmission Date: 20150721
  Serious: Yes (Death, Disabling)
  Sender: FDA-Public Use
  Company Number: DK-PFIZER INC-2012140957

PATIENT
  Age: 38 Year
  Sex: Female

DRUGS (9)
  1. FARMORUBICIN [Suspect]
     Active Substance: EPIRUBICIN HYDROCHLORIDE
     Dosage: 161 MG, SINGLE
     Route: 042
     Dates: start: 20081027, end: 20081027
  2. FARMORUBICIN [Suspect]
     Active Substance: EPIRUBICIN HYDROCHLORIDE
     Dosage: 161 MG, SINGLE
     Route: 042
     Dates: start: 20081117, end: 20081117
  3. CYCLOPHOSPHAMIDE. [Concomitant]
     Active Substance: CYCLOPHOSPHAMIDE
     Indication: BREAST CANCER
     Dosage: 1074 MG, SINGLE
     Route: 042
     Dates: start: 20081006, end: 20081006
  4. TAXOTERE [Concomitant]
     Active Substance: DOCETAXEL
     Indication: BREAST CANCER
     Dosage: 184 MG, SINGLE
     Route: 042
     Dates: start: 20081208, end: 20081208
  5. CYCLOPHOSPHAMIDE. [Concomitant]
     Active Substance: CYCLOPHOSPHAMIDE
     Dosage: 1074 MG, SINGLE
     Dates: start: 20081117, end: 20081117
  6. TAXOTERE [Concomitant]
     Active Substance: DOCETAXEL
     Dosage: 184 MG, SINGLE
     Dates: start: 20081229, end: 20081229
  7. FARMORUBICIN [Suspect]
     Active Substance: EPIRUBICIN HYDROCHLORIDE
     Indication: BREAST CANCER
     Dosage: 161 MG, SINGLE
     Route: 042
     Dates: start: 20081006, end: 20081006
  8. CYCLOPHOSPHAMIDE. [Concomitant]
     Active Substance: CYCLOPHOSPHAMIDE
     Dosage: 1074 MG, SINGLE
     Dates: start: 20081027, end: 20081027
  9. TAXOTERE [Concomitant]
     Active Substance: DOCETAXEL
     Dosage: 184 MG, SINGLE
     Route: 042
     Dates: start: 20090119, end: 20090119

REACTIONS (5)
  - Cardiac failure [Recovered/Resolved]
  - Dyspnoea [Recovered/Resolved]
  - Pulmonary function test decreased [Recovered/Resolved]
  - Cardiac failure [Fatal]
  - Heart transplant rejection [Fatal]

NARRATIVE: CASE EVENT DATE: 201012
